FAERS Safety Report 15030810 (Version 2)
Quarter: 2018Q2

REPORT INFORMATION
  Report Type: Report from Study
  Country: US (occurrence: US)
  Receive Date: 20180619
  Receipt Date: 20180627
  Transmission Date: 20180711
  Serious: Yes (Hospitalization)
  Sender: FDA-Public Use
  Company Number: US-ACTELION-A-NJ2017-161938

PATIENT
  Age: 58 Year
  Sex: Female
  Weight: 118.82 kg

DRUGS (6)
  1. ADCIRCA [Concomitant]
     Active Substance: TADALAFIL
     Dosage: UNK
     Route: 065
  2. METOPROLOL. [Concomitant]
     Active Substance: METOPROLOL
  3. OPSUMIT [Suspect]
     Active Substance: MACITENTAN
     Dosage: 10 MG, QD
     Route: 048
  4. ADCIRCA [Concomitant]
     Active Substance: TADALAFIL
     Dosage: UNK
  5. WARFARIN [Concomitant]
     Active Substance: WARFARIN
  6. OPSUMIT [Suspect]
     Active Substance: MACITENTAN
     Indication: PULMONARY ARTERIAL HYPERTENSION
     Dosage: 10 MG, QD
     Route: 048
     Dates: end: 20180529

REACTIONS (15)
  - Influenza [Unknown]
  - Rash generalised [Not Recovered/Not Resolved]
  - Feeling abnormal [Unknown]
  - Pulmonary congestion [Unknown]
  - Rash pruritic [Unknown]
  - Fluid retention [Unknown]
  - Sinusitis [Not Recovered/Not Resolved]
  - Nasal congestion [Not Recovered/Not Resolved]
  - Staphylococcal infection [Unknown]
  - Swelling [Not Recovered/Not Resolved]
  - Hypotension [Unknown]
  - Renal failure [Unknown]
  - Hypersensitivity [Unknown]
  - Sneezing [Not Recovered/Not Resolved]
  - Therapy non-responder [Unknown]

NARRATIVE: CASE EVENT DATE: 20170801
